FAERS Safety Report 9514247 (Version 2)
Quarter: 2013Q3

REPORT INFORMATION
  Report Type: Spontaneous
  Country: US (occurrence: US)
  Receive Date: 20130910
  Receipt Date: 20130919
  Transmission Date: 20140515
  Serious: Yes (Hospitalization, Other)
  Sender: FDA-Public Use
  Company Number: US-BAXTER-2013BAX034819

PATIENT
  Age: 52 Year
  Sex: Female

DRUGS (2)
  1. DIANEAL LOW CALCIUM (ULTRABAG) [Suspect]
     Indication: RENAL FAILURE CHRONIC
     Route: 033
     Dates: end: 20130725
  2. DIANEAL LOW CALCIUM (ULTRABAG) [Suspect]
     Indication: RENAL FAILURE CHRONIC
     Route: 033
     Dates: end: 20130725

REACTIONS (5)
  - Mental disorder [Not Recovered/Not Resolved]
  - Appendicitis perforated [Recovering/Resolving]
  - Infection [Recovering/Resolving]
  - Cerebrovascular accident [Recovering/Resolving]
  - Dementia [Unknown]
